FAERS Safety Report 18136378 (Version 1)
Quarter: 2020Q3

REPORT INFORMATION
  Report Type: Spontaneous
  Country: US (occurrence: US)
  Receive Date: 20200811
  Receipt Date: 20200811
  Transmission Date: 20201103
  Serious: No
  Sender: FDA-Public Use
  Company Number: US-TEVA-2020-US-1812122

PATIENT
  Age: 37 Year
  Sex: Female

DRUGS (1)
  1. FLUOXETINE [Suspect]
     Active Substance: FLUOXETINE HYDROCHLORIDE
     Indication: AFFECTIVE DISORDER
     Route: 065
     Dates: start: 2020

REACTIONS (4)
  - Food allergy [Unknown]
  - Rubber sensitivity [Unknown]
  - Swelling [Unknown]
  - Adverse event [Unknown]

NARRATIVE: CASE EVENT DATE: 202007
